FAERS Safety Report 6103933-3 (Version None)
Quarter: 2009Q1

REPORT INFORMATION
  Report Type: 
  Country: None (occurrence: None)
  Receive Date: 20090305
  Receipt Date: 20090227
  Transmission Date: 20090719
  Serious: Yes (Other)
  Sender: FDA-Public Use
  Company Number: B0532897A

PATIENT
  Age: 56 Year
  Sex: Female

DRUGS (7)
  1. INFLUENZA VACCINE [Suspect]
     Route: 065
     Dates: start: 20081101, end: 20081101
  2. SERETIDE [Suspect]
     Indication: ASTHMA
     Dosage: 2PUFF TWICE PER DAY
     Route: 055
     Dates: start: 20080201
  3. VENTOLIN [Suspect]
     Indication: ASTHMA
     Dosage: 100MCG AS REQUIRED
     Route: 055
  4. LISINOPRIL [Concomitant]
     Route: 065
  5. ASPIRIN [Concomitant]
     Route: 065
  6. AMLODIPINE [Concomitant]
     Route: 065
  7. ANTIBIOTICS [Concomitant]
     Route: 048

REACTIONS (10)
  - APHONIA [None]
  - ASTHMA [None]
  - CHEST DISCOMFORT [None]
  - COUGH [None]
  - DYSPNOEA [None]
  - HAEMORRHAGE [None]
  - LOWER RESPIRATORY TRACT INFECTION [None]
  - MALAISE [None]
  - MEMORY IMPAIRMENT [None]
  - MIDDLE INSOMNIA [None]
